FAERS Safety Report 7345239-0 (Version None)
Quarter: 2011Q1

REPORT INFORMATION
  Report Type: 
  Country: None (occurrence: None)
  Receive Date: 20110310
  Receipt Date: 20110303
  Transmission Date: 20110831
  Serious: Yes (Congenital Anomaly, Other)
  Sender: FDA-Public Use
  Company Number: JP-SANOFI-AVENTIS-2011SA013780

PATIENT
  Sex: Male
  Weight: 3.54 kg

DRUGS (4)
  1. HUMALIN [Concomitant]
     Route: 064
     Dates: start: 20080530
  2. NOVOLIN N [Concomitant]
     Route: 064
     Dates: start: 20071116, end: 20080602
  3. NOVORAPID [Concomitant]
     Route: 064
     Dates: start: 20060501
  4. LANTUS [Suspect]
     Route: 064
     Dates: start: 20060501, end: 20071116

REACTIONS (3)
  - DRUG EXPOSURE DURING PREGNANCY [None]
  - CRYPTORCHISM [None]
  - HYPOGLYCAEMIA NEONATAL [None]
